FAERS Safety Report 19868662 (Version 1)
Quarter: 2021Q3

REPORT INFORMATION
  Report Type: Report from Study
  Country: None (occurrence: CA)
  Receive Date: 20210921
  Receipt Date: 20210921
  Transmission Date: 20211014
  Serious: Yes (Other)
  Sender: FDA-Public Use
  Company Number: CA-ABBVIE-21K-028-4086584-00

PATIENT
  Age: 42 Year
  Sex: Male

DRUGS (1)
  1. SKYRIZI [Suspect]
     Active Substance: RISANKIZUMAB-RZAA
     Indication: PSORIASIS
     Route: 058
     Dates: start: 20200129, end: 20210714

REACTIONS (6)
  - Pharyngeal swelling [Unknown]
  - Fatigue [Unknown]
  - Swollen tongue [Unknown]
  - Neoplasm malignant [Unknown]
  - Weight decreased [Unknown]
  - Haemoptysis [Unknown]

NARRATIVE: CASE EVENT DATE: 202107
